FAERS Safety Report 4375942-6 (Version None)
Quarter: 2004Q2

REPORT INFORMATION
  Report Type: 
  Country: None (occurrence: None)
  Receive Date: 20040607
  Receipt Date: 20040524
  Transmission Date: 20050107
  Serious: No
  Sender: FDA-Public Use
  Company Number: RENA-11006

PATIENT
  Age: 55 Year
  Sex: Female
  Weight: 56.7 kg

DRUGS (6)
  1. RENAGEL [Suspect]
     Indication: HYPERPHOSPHATAEMIA
     Dosage: 0.5 G TID PO
     Route: 048
     Dates: start: 20040302, end: 20040301
  2. ASPIRIN [Concomitant]
  3. FERROUS SULFATE TAB [Concomitant]
  4. CANDESARTAN CILEXETIL [Concomitant]
  5. BERIZYM (ENZYMES NOS) [Concomitant]
  6. CALCITRIOL [Concomitant]

REACTIONS (7)
  - DIARRHOEA [None]
  - HEPATIC FUNCTION ABNORMAL [None]
  - INSOMNIA [None]
  - MALAISE [None]
  - NAUSEA [None]
  - PRURITUS GENERALISED [None]
  - VOMITING [None]
